FAERS Safety Report 8237840-7 (Version None)
Quarter: 2012Q1

REPORT INFORMATION
  Report Type: 
  Country: None (occurrence: None)
  Receive Date: 20120326
  Receipt Date: 20110727
  Transmission Date: 20120608
  Serious: Yes (Life-Threatening, Other)
  Sender: FDA-Public Use
  Company Number: IND1-US-2011-0032

PATIENT

DRUGS (3)
  1. ANTIBIOTICS (ANTIBIOTICS) [Concomitant]
  2. INDOMETHACIN [Suspect]
     Indication: TOCOLYSIS
     Dosage: UNKNOWN (WITHIN 2 WEEKS BEFORE DELIVERY), TRANSPLACENTAL
     Route: 064
  3. MAGNESIUM SULFATE (MAGNESIUM SULFATE) (MAGNESIUM SULFATE) [Concomitant]

REACTIONS (3)
  - OFF LABEL USE [None]
  - NECROTISING COLITIS [None]
  - MATERNAL DRUGS AFFECTING FOETUS [None]
